FAERS Safety Report 12754909 (Version 1)
Quarter: 2016Q3

REPORT INFORMATION
  Report Type: Report from Study
  Country: BR (occurrence: BR)
  Receive Date: 20160916
  Receipt Date: 20160916
  Transmission Date: 20161109
  Serious: Yes (Hospitalization, Other)
  Sender: FDA-Public Use
  Company Number: PHHY2016BR125818

PATIENT
  Sex: Female
  Weight: 48.7 kg

DRUGS (1)
  1. EXJADE [Suspect]
     Active Substance: DEFERASIROX
     Indication: SICKLE CELL ANAEMIA
     Dosage: 3 DF, QD (1500 MG)
     Route: 065

REACTIONS (4)
  - Sickle cell anaemia with crisis [Unknown]
  - Memory impairment [Unknown]
  - General physical health deterioration [Unknown]
  - Cerebrovascular accident [Unknown]
